FAERS Safety Report 5824886-9 (Version None)
Quarter: 2008Q3

REPORT INFORMATION
  Report Type: 
  Country: None (occurrence: None)
  Receive Date: 20080728
  Receipt Date: 20080710
  Transmission Date: 20090109
  Serious: No
  Sender: FDA-Public Use
  Company Number: US-BOEHRINGER INGELHEIM GMBH, GERMANY-2008-BP-07042BP

PATIENT
  Sex: Male

DRUGS (2)
  1. CATAPRES-TTS-1 [Suspect]
     Indication: HYPERTENSION
     Route: 061
     Dates: start: 20050801
  2. CATAPRES-TTS-1 [Suspect]

REACTIONS (4)
  - APPLICATION SITE PRURITUS [None]
  - APPLICATION SITE RASH [None]
  - SKIN HAEMORRHAGE [None]
  - SKIN IRRITATION [None]
